FAERS Safety Report 7921744-0 (Version None)
Quarter: 2011Q4

REPORT INFORMATION
  Report Type: 
  Country: None (occurrence: None)
  Receive Date: 20111117
  Receipt Date: 20111103
  Transmission Date: 20120403
  Serious: Yes (Other)
  Sender: FDA-Public Use
  Company Number: BR-GLAXOSMITHKLINE-A0953439A

PATIENT
  Sex: Male
  Weight: 92 kg

DRUGS (2)
  1. FLUTICASONE PROPIONATE/SALMETEROL [Suspect]
     Indication: CHRONIC OBSTRUCTIVE PULMONARY DISEASE
     Dosage: 1PUFF SEE DOSAGE TEXT
     Route: 055
     Dates: start: 20090101
  2. UNSPECIFIED MEDICATION [Concomitant]
     Indication: PRODUCT USED FOR UNKNOWN INDICATION
     Dosage: 200MG THREE TIMES PER DAY
     Dates: start: 20111001

REACTIONS (6)
  - DYSPNOEA [None]
  - PRODUCT QUALITY ISSUE [None]
  - TACHYCARDIA [None]
  - PNEUMONIA [None]
  - MALAISE [None]
  - HEADACHE [None]
